FAERS Safety Report 5036267-9 (Version None)
Quarter: 2006Q2

REPORT INFORMATION
  Report Type: 
  Country: None (occurrence: None)
  Receive Date: 20060601
  Receipt Date: 20060428
  Transmission Date: 20061013
  Serious: No
  Sender: FDA-Public Use
  Company Number: US200605000209

PATIENT
  Age: 84 Year
  Sex: Female

DRUGS (7)
  1. CYMBALTA [Suspect]
     Indication: DEPRESSION
     Dosage: 60 MG, DAILY (1/D), ORAL
     Route: 048
     Dates: start: 20040801
  2. ANTIHYPERTENSIVES [Concomitant]
  3. CALCIUM CARBONATE (CALCIUM CARBONATE) [Concomitant]
  4. ULTRAM [Concomitant]
  5. TYLENOL /USA/ (PARACETAMOL) [Concomitant]
  6. PERCOCET [Concomitant]
  7. ASPIRIN [Concomitant]

REACTIONS (3)
  - APATHY [None]
  - DRUG INEFFECTIVE [None]
  - SOMNOLENCE [None]
